FAERS Safety Report 5373683-X (Version None)
Quarter: 2007Q2

REPORT INFORMATION
  Report Type: 
  Country: None (occurrence: None)
  Receive Date: 20070628
  Receipt Date: 20070621
  Transmission Date: 20071010
  Serious: Yes (Hospitalization)
  Sender: FDA-Public Use
  Company Number: CH-ASTRAZENECA-2007PK01260

PATIENT
  Age: 79 Year
  Sex: Male

DRUGS (14)
  1. NEXIUM [Suspect]
     Route: 048
     Dates: end: 20070209
  2. MARCUMAR [Suspect]
     Indication: ATRIOVENTRICULAR BLOCK COMPLETE
     Route: 048
     Dates: end: 20070221
  3. ASPIRIN [Suspect]
     Indication: ATRIOVENTRICULAR BLOCK COMPLETE
     Route: 048
     Dates: start: 20070214, end: 20070223
  4. FRAGMIN [Suspect]
     Dates: start: 20070216, end: 20070222
  5. TORSEMIDE [Concomitant]
     Route: 048
  6. OXIS [Concomitant]
     Route: 055
  7. SPIRIVA [Concomitant]
     Route: 055
  8. SEROQUEL [Concomitant]
     Route: 048
     Dates: start: 20070214
  9. TRIATEC [Concomitant]
     Route: 048
     Dates: start: 20070214
  10. BELOC [Concomitant]
     Route: 048
     Dates: start: 20070215
  11. TAZOBAC [Concomitant]
     Indication: PNEUMONIA
     Dosage: 4.0/0.5 MG TWICE DAILY
     Route: 042
     Dates: start: 20070215, end: 20070222
  12. NORVASC [Concomitant]
     Route: 048
     Dates: start: 20070220
  13. KLACID [Concomitant]
     Dates: start: 20070215, end: 20070219
  14. ROCEPHIN [Concomitant]
     Dates: start: 20070212, end: 20070215

REACTIONS (3)
  - GASTRIC ULCER HAEMORRHAGE [None]
  - HAEMORRHAGIC ANAEMIA [None]
  - MELAENA [None]
